FAERS Safety Report 9612904 (Version 1)
Quarter: 2013Q4

REPORT INFORMATION
  Report Type: Spontaneous
  Country: FR (occurrence: FR)
  Receive Date: 20131010
  Receipt Date: 20131010
  Transmission Date: 20140711
  Serious: Yes (Hospitalization)
  Sender: FDA-Public Use
  Company Number: FR-B.I. PHARMACEUTICALS,INC./RIDGEFIELD-2013-FF-02454FF

PATIENT
  Age: 72 Year
  Sex: Male

DRUGS (3)
  1. PRADAXA [Suspect]
     Indication: ATRIAL FIBRILLATION
     Dosage: 220 MG
     Route: 048
     Dates: start: 201304, end: 20130913
  2. CARDENSIEL [Concomitant]
     Route: 048
     Dates: start: 201204, end: 201309
  3. CRESTOR [Concomitant]
     Dates: end: 201309

REACTIONS (2)
  - Pulmonary alveolar haemorrhage [Recovered/Resolved]
  - Respiratory distress [Recovered/Resolved]
